FAERS Safety Report 6255729-X (Version None)
Quarter: 2009Q3

REPORT INFORMATION
  Report Type: 
  Country: None (occurrence: None)
  Receive Date: 20090701
  Receipt Date: 20090629
  Transmission Date: 20100115
  Serious: Yes (Other)
  Sender: FDA-Public Use
  Company Number: 09GB002222

PATIENT
  Age: 72 Year
  Sex: Male
  Weight: 70.5 kg

DRUGS (6)
  1. NAPROXEN SODIUM [Suspect]
     Indication: RHEUMATOID ARTHRITIS
     Dosage: ORAL
     Route: 048
     Dates: start: 19970101
  2. ETANERCEPT (ETANERCEPT) [Suspect]
     Indication: RHEUMATOID ARTHRITIS
     Dosage: 50 MG, WEEKLY, SUBCUTANEOUS
     Route: 058
     Dates: start: 20090120, end: 20090501
  3. ALENDRONIC ACID (ALENDRONIC ACID) [Suspect]
     Indication: PROPHYLAXIS
     Dosage: 70 MG, WEEKLY, ORAL
     Route: 048
     Dates: start: 19700101
  4. OMEPRAZOLE [Suspect]
     Dosage: 20 MG, QD, ORAL
     Route: 048
     Dates: start: 20030101
  5. PREDNISOLONE ACETATE [Suspect]
     Indication: RHEUMATOID ARTHRITIS
     Dosage: 7.5 MG, QD, ORAL
     Route: 048
     Dates: start: 20051001
  6. ALLOPURINOL [Concomitant]
     Indication: GOUT
     Dosage: ORAL
     Route: 048
     Dates: start: 19680101

REACTIONS (4)
  - ABNORMAL FAECES [None]
  - DIVERTICULITIS [None]
  - HAEMATOCHEZIA [None]
  - RECTAL HAEMORRHAGE [None]
